FAERS Safety Report 18026582 (Version 14)
Quarter: 2022Q3

REPORT INFORMATION
  Report Type: Report from Study
  Country: US (occurrence: US)
  Receive Date: 20200715
  Receipt Date: 20220823
  Transmission Date: 20221027
  Serious: Yes (Hospitalization, Other)
  Sender: FDA-Public Use
  Company Number: US-SHIRE-US201931447

PATIENT
  Age: 66 Year
  Sex: Female
  Weight: 60 kg

DRUGS (22)
  1. TEDUGLUTIDE [Suspect]
     Active Substance: TEDUGLUTIDE
     Indication: Short-bowel syndrome
     Dosage: 2.93 MILLIGRAM (0.05 MILLIGRAM/KILOGRAM DAILU DOSE), 7 DOSES PER WEEK
     Route: 042
     Dates: start: 20180826, end: 20190530
  2. TEDUGLUTIDE [Suspect]
     Active Substance: TEDUGLUTIDE
     Indication: Short-bowel syndrome
     Dosage: 2.93 MILLIGRAM (0.05 MILLIGRAM/KILOGRAM DAILU DOSE), 7 DOSES PER WEEK
     Route: 042
     Dates: start: 20180826, end: 20190530
  3. TEDUGLUTIDE [Suspect]
     Active Substance: TEDUGLUTIDE
     Indication: Short-bowel syndrome
     Dosage: 2.93 MILLIGRAM (0.05 MILLIGRAM/KILOGRAM DAILU DOSE), 7 DOSES PER WEEK
     Route: 042
     Dates: start: 20180826, end: 20190530
  4. TEDUGLUTIDE [Suspect]
     Active Substance: TEDUGLUTIDE
     Indication: Short-bowel syndrome
     Dosage: 2.93 MILLIGRAM (0.05 MILLIGRAM/KILOGRAM DAILU DOSE), 7 DOSES PER WEEK
     Route: 042
     Dates: start: 20180826, end: 20190530
  5. TEDUGLUTIDE [Suspect]
     Active Substance: TEDUGLUTIDE
     Dosage: 2.93 MILLIGRAM (0.05 MILLIGRAM/KILOGRAM DAILU DOSE), 7 DOSES PER WEEK
     Route: 042
     Dates: start: 20190605, end: 20201006
  6. TEDUGLUTIDE [Suspect]
     Active Substance: TEDUGLUTIDE
     Dosage: 2.93 MILLIGRAM (0.05 MILLIGRAM/KILOGRAM DAILU DOSE), 7 DOSES PER WEEK
     Route: 042
     Dates: start: 20190605, end: 20201006
  7. TEDUGLUTIDE [Suspect]
     Active Substance: TEDUGLUTIDE
     Dosage: 2.93 MILLIGRAM (0.05 MILLIGRAM/KILOGRAM DAILU DOSE), 7 DOSES PER WEEK
     Route: 042
     Dates: start: 20190605, end: 20201006
  8. TEDUGLUTIDE [Suspect]
     Active Substance: TEDUGLUTIDE
     Dosage: 2.93 MILLIGRAM (0.05 MILLIGRAM/KILOGRAM DAILU DOSE), 7 DOSES PER WEEK
     Route: 042
     Dates: start: 20190605, end: 20201006
  9. TEDUGLUTIDE [Suspect]
     Active Substance: TEDUGLUTIDE
     Dosage: 2.775 MILLIGRAM, QD
     Route: 042
     Dates: start: 20201007
  10. TEDUGLUTIDE [Suspect]
     Active Substance: TEDUGLUTIDE
     Dosage: 2.775 MILLIGRAM, QD
     Route: 042
     Dates: start: 20201007
  11. TEDUGLUTIDE [Suspect]
     Active Substance: TEDUGLUTIDE
     Dosage: 2.775 MILLIGRAM, QD
     Route: 042
     Dates: start: 20201007
  12. TEDUGLUTIDE [Suspect]
     Active Substance: TEDUGLUTIDE
     Dosage: 2.775 MILLIGRAM, QD
     Route: 042
     Dates: start: 20201007
  13. MOXIFLOXACIN [Concomitant]
     Active Substance: MOXIFLOXACIN
     Indication: Bacteraemia
     Dosage: 400 MILLIGRAM, QD
     Route: 042
     Dates: start: 20200217, end: 20200328
  14. MOXIFLOXACIN [Concomitant]
     Active Substance: MOXIFLOXACIN
     Dosage: 400 MILLIGRAM, QD
     Route: 048
     Dates: start: 20200213, end: 20200213
  15. MOXIFLOXACIN [Concomitant]
     Active Substance: MOXIFLOXACIN
     Dosage: 400 MILLIGRAM, QD
     Route: 042
     Dates: start: 20200214, end: 20200215
  16. AZITHROMYCIN [Concomitant]
     Active Substance: AZITHROMYCIN
     Indication: Bacteraemia
     Dosage: 500 MILLIGRAM, QD
     Route: 048
     Dates: start: 20200217, end: 20200328
  17. CHOLESTYRAMINE [Concomitant]
     Active Substance: CHOLESTYRAMINE
     Indication: Diarrhoea
     Dosage: 1 DOSAGE FORM, TID
     Route: 048
     Dates: start: 20210726
  18. DOXYCYCLINE [Concomitant]
     Active Substance: DOXYCYCLINE
     Indication: Gastrointestinal bacterial overgrowth
     Dosage: 100 MILLIGRAM, BID
     Route: 048
     Dates: start: 20210726
  19. FAMOTIDINE [Concomitant]
     Active Substance: FAMOTIDINE
     Indication: Gastrooesophageal reflux disease
     Dosage: 40 MILLIGRAM, BID
     Route: 048
     Dates: start: 20210614
  20. FAMOTIDINE [Concomitant]
     Active Substance: FAMOTIDINE
     Indication: Condition aggravated
  21. OMEPRAZOLE [Concomitant]
     Active Substance: OMEPRAZOLE
     Indication: Gastrooesophageal reflux disease
     Dosage: 40 MILLIGRAM, BID
     Route: 048
  22. OMEPRAZOLE [Concomitant]
     Active Substance: OMEPRAZOLE
     Indication: Condition aggravated

REACTIONS (7)
  - Klebsiella bacteraemia [Recovered/Resolved]
  - Intraductal papillary mucinous neoplasm [Not Recovered/Not Resolved]
  - Vascular device infection [Recovered/Resolved]
  - Atypical mycobacterial infection [Recovered/Resolved]
  - Rectal polyp [Recovered/Resolved]
  - Duodenal polyp [Recovered/Resolved]
  - Gastrointestinal wall thickening [Recovered/Resolved]

NARRATIVE: CASE EVENT DATE: 20190830
